FAERS Safety Report 7487286-4 (Version None)
Quarter: 2011Q2

REPORT INFORMATION
  Report Type: 
  Country: None (occurrence: None)
  Receive Date: 20110510
  Receipt Date: 20110428
  Transmission Date: 20111010
  Serious: Yes (Other)
  Sender: FDA-Public Use
  Company Number: B0717743A

PATIENT
  Age: 56 Year
  Sex: Female

DRUGS (2)
  1. ACITRETIN [Suspect]
     Indication: KERATOSIS FOLLICULAR
  2. TAMOXIFEN CITRATE [Suspect]
     Dosage: BREAST CANCER

REACTIONS (6)
  - ELECTROCARDIOGRAM QT PROLONGED [None]
  - ORTHOSTATIC HYPOTENSION [None]
  - HYPOTHYROIDISM [None]
  - CHEST DISCOMFORT [None]
  - SINUS BRADYCARDIA [None]
  - DRUG INTERACTION [None]
